FAERS Safety Report 7556308 (Version 5)
Quarter: 2015Q3

REPORT INFORMATION
  Report Type: Spontaneous
  Country: US (occurrence: US)
  Receive Date: 20100827
  Receipt Date: 20150706
  Transmission Date: 20151125
  Serious: Yes (Hospitalization)
  Sender: FDA-Public Use
  Company Number: US-BAYER-201031559NA

PATIENT
  Age: 42 Year
  Sex: Female
  Weight: 90.7 kg

DRUGS (1)
  1. YAZ [Suspect]
     Active Substance: DROSPIRENONE\ETHINYL ESTRADIOL
     Indication: ACNE
     Dosage: UNK UNK, UNK
     Route: 048
     Dates: start: 2006, end: 20100722

REACTIONS (7)
  - Product use issue [None]
  - Pain [None]
  - Thrombosis [None]
  - Injury [Recovered/Resolved]
  - Pain [Recovered/Resolved]
  - Thrombosis [None]
  - Deep vein thrombosis [Recovered/Resolved]

NARRATIVE: CASE EVENT DATE: 2009
